FAERS Safety Report 21560305 (Version 1)
Quarter: 2022Q4

REPORT INFORMATION
  Report Type: Spontaneous
  Country: AU (occurrence: AU)
  Receive Date: 20221107
  Receipt Date: 20221107
  Transmission Date: 20230112
  Serious: Yes (Other)
  Sender: FDA-Public Use
  Company Number: AU-002147023-NVSC2022AU249556

PATIENT
  Age: 56 Year
  Sex: Male

DRUGS (15)
  1. ENTRESTO [Suspect]
     Active Substance: SACUBITRIL\VALSARTAN
     Indication: Pain
     Dosage: UNK
     Route: 065
  2. ATORVASTATIN [Suspect]
     Active Substance: ATORVASTATIN
     Indication: Pain
     Dosage: UNK
     Route: 065
  3. BISOPROLOL [Suspect]
     Active Substance: BISOPROLOL
     Indication: Pain
     Dosage: UNK
     Route: 065
  4. FLUOXETINE [Suspect]
     Active Substance: FLUOXETINE HYDROCHLORIDE
     Indication: Pain
     Dosage: UNK
     Route: 065
  5. FUROSEMIDE [Suspect]
     Active Substance: FUROSEMIDE
     Indication: Pain
     Dosage: UNK
     Route: 065
  6. OXYCODONE [Suspect]
     Active Substance: OXYCODONE
     Indication: Pain
     Dosage: UNK
     Route: 065
  7. FENTANYL [Suspect]
     Active Substance: FENTANYL
     Indication: Pain
     Dosage: UNK
     Route: 065
  8. EPLERENONE [Suspect]
     Active Substance: EPLERENONE
     Indication: Pain
     Dosage: UNK
     Route: 065
  9. ASPIRIN [Suspect]
     Active Substance: ASPIRIN
     Indication: Pain
     Dosage: UNK
     Route: 065
  10. DIGOXIN [Suspect]
     Active Substance: DIGOXIN
     Indication: Pain
     Dosage: UNK
     Route: 065
  11. DAPAGLIFLOZIN [Suspect]
     Active Substance: DAPAGLIFLOZIN
     Indication: Pain
     Dosage: UNK
     Route: 065
  12. WARFARIN [Suspect]
     Active Substance: WARFARIN
     Indication: Pain
     Dosage: UNK
     Route: 065
  13. ZOPICLONE [Suspect]
     Active Substance: ZOPICLONE
     Indication: Pain
     Dosage: UNK
     Route: 065
  14. DIAZEPAM [Suspect]
     Active Substance: DIAZEPAM
     Indication: Pain
     Dosage: UNK
     Route: 065
  15. INSULIN NOS [Suspect]
     Active Substance: INSULIN NOS
     Indication: Pain
     Dosage: UNK
     Route: 065

REACTIONS (5)
  - Myocardial infarction [Unknown]
  - Mobility decreased [Unknown]
  - Pain [Unknown]
  - Injury [Unknown]
  - Disturbance in attention [Unknown]
